FAERS Safety Report 24624469 (Version 3)
Quarter: 2024Q4

REPORT INFORMATION
  Report Type: Report from Study
  Country: JP (occurrence: JP)
  Receive Date: 20241115
  Receipt Date: 20241230
  Transmission Date: 20250115
  Serious: Yes (Hospitalization)
  Sender: EISAI
  Company Number: JP-Eisai-EC-2024-178732

PATIENT
  Age: 78 Year
  Sex: Male

DRUGS (14)
  1. LENVATINIB [Suspect]
     Active Substance: LENVATINIB
     Indication: Pleural mesothelioma malignant
     Dosage: (REPORTED AS SID)
     Route: 048
     Dates: start: 20240613, end: 20240703
  2. LENVATINIB [Suspect]
     Active Substance: LENVATINIB
     Route: 048
     Dates: start: 20240725
  3. LENVATINIB [Suspect]
     Active Substance: LENVATINIB
     Dosage: (REPORTED AS SID)
     Route: 048
     Dates: start: 20240704, end: 20240724
  4. PEMBROLIZUMAB [Suspect]
     Active Substance: PEMBROLIZUMAB
     Indication: Pleural mesothelioma malignant
     Route: 042
     Dates: start: 20240613
  5. SODIUM GUALENATE MONOHYDRATE [Concomitant]
     Active Substance: SODIUM GUALENATE MONOHYDRATE
     Dates: start: 20240618
  6. VONOPRAZAN FUMARATE [Concomitant]
     Active Substance: VONOPRAZAN FUMARATE
     Dates: start: 20240501
  7. NICORANDIL [Concomitant]
     Active Substance: NICORANDIL
  8. ATORVASTATIN CALCIUM\EZETIMIBE [Concomitant]
     Active Substance: ATORVASTATIN CALCIUM\EZETIMIBE
  9. REBAMIPIDE [Concomitant]
     Active Substance: REBAMIPIDE
     Dates: start: 20240423
  10. DOMPERIDONE [Concomitant]
     Active Substance: DOMPERIDONE
     Dates: start: 20240613
  11. EMPAGLIFLOZIN [Concomitant]
     Active Substance: EMPAGLIFLOZIN
     Dates: start: 20240613
  12. DOMIPHEN BROMIDE [Concomitant]
     Active Substance: DOMIPHEN BROMIDE
     Dates: start: 20240624
  13. ASPIRIN [Concomitant]
     Active Substance: ASPIRIN
  14. LOXOPROFEN SODIUM DIHYDRATE [Concomitant]
     Active Substance: LOXOPROFEN SODIUM DIHYDRATE
     Dates: start: 20240423

REACTIONS (1)
  - Proteinuria [Not Recovered/Not Resolved]

NARRATIVE: CASE EVENT DATE: 20241028
